FAERS Safety Report 24826011 (Version 1)
Quarter: 2025Q1

REPORT INFORMATION
  Report Type: Spontaneous
  Country: US (occurrence: US)
  Receive Date: 20250109
  Receipt Date: 20250109
  Transmission Date: 20250408
  Serious: Yes (Other)
  Sender: AMGEN
  Company Number: US-AMGEN-USASP2025001242

PATIENT
  Age: 55 Year
  Sex: Female

DRUGS (9)
  1. CARFILZOMIB [Suspect]
     Active Substance: CARFILZOMIB
     Indication: TEMPI syndrome
     Route: 065
  2. CARFILZOMIB [Suspect]
     Active Substance: CARFILZOMIB
     Indication: Off label use
  3. DARATUMUMAB [Suspect]
     Active Substance: DARATUMUMAB
     Indication: TEMPI syndrome
     Route: 065
  4. DARATUMUMAB [Suspect]
     Active Substance: DARATUMUMAB
     Dosage: UNK, Q2MO
     Route: 065
  5. DARATUMUMAB [Suspect]
     Active Substance: DARATUMUMAB
     Dosage: UNK, Q3MO
     Route: 065
  6. LENALIDOMIDE [Suspect]
     Active Substance: LENALIDOMIDE
     Indication: TEMPI syndrome
     Route: 065
  7. TECLISTAMAB [Suspect]
     Active Substance: TECLISTAMAB
     Indication: TEMPI syndrome
     Route: 058
     Dates: start: 202401
  8. TECLISTAMAB [Suspect]
     Active Substance: TECLISTAMAB
     Route: 058
  9. TECLISTAMAB [Suspect]
     Active Substance: TECLISTAMAB
     Dosage: 1.5 MILLIGRAM/KILOGRAM, QWK
     Route: 058

REACTIONS (6)
  - Hypogammaglobulinaemia [Unknown]
  - Adverse drug reaction [Unknown]
  - Influenza like illness [Unknown]
  - Fatigue [Unknown]
  - Therapeutic product effect incomplete [Unknown]
  - Off label use [Unknown]
